FAERS Safety Report 6756216-2 (Version None)
Quarter: 2010Q2

REPORT INFORMATION
  Report Type: 
  Country: None (occurrence: None)
  Receive Date: 20100604
  Receipt Date: 20100603
  Transmission Date: 20101027
  Serious: Yes (Death, Hospitalization)
  Sender: FDA-Public Use
  Company Number: PHHY2010CA35977

PATIENT
  Sex: Male

DRUGS (1)
  1. SANDOSTATIN [Suspect]
     Indication: HEPATIC NEOPLASM
     Dosage: UNK
     Route: 058
     Dates: start: 20091222

REACTIONS (1)
  - CARDIAC FAILURE [None]
